FAERS Safety Report 8880978 (Version 1)
Quarter: 2012Q4

REPORT INFORMATION
  Report Type: 
  Country: SE (occurrence: SE)
  Receive Date: 20121101
  Receipt Date: 20121101
  Transmission Date: 20130627
  Serious: Yes (Hospitalization)
  Sender: FDA-Public Use
  Company Number: SE-PFIZER INC-2012267748

PATIENT
  Age: 43 Year
  Sex: Female
  Weight: 62 kg

DRUGS (8)
  1. GENOTROPIN [Suspect]
     Indication: GROWTH HORMONE DEFICIENCY
     Dosage: 0.5 mg, 1x/day, 7 injections /week
     Route: 058
     Dates: start: 20060215
  2. HYDROCORTONE [Concomitant]
     Indication: ACTH DECREASED
     Dosage: UNK
     Dates: start: 20041011
  3. FEMASEKVENS [Concomitant]
     Indication: LH BLOOD DECREASED
     Dosage: UNK
     Dates: start: 20050621
  4. FEMASEKVENS [Concomitant]
     Indication: FSH DECREASED
  5. FEMASEKVENS [Concomitant]
     Indication: HYPOGONADISM FEMALE
  6. MINRIN [Concomitant]
     Indication: ADH DECREASED
     Dosage: UNK
     Dates: start: 20041211
  7. LEVOTHYROXINE [Concomitant]
     Indication: TSH DECREASED
     Dosage: UNK
     Dates: start: 20041011
  8. LEVOTHYROXINE [Concomitant]
     Indication: PRIMARY HYPOTHYROIDISM

REACTIONS (1)
  - Meningitis [Unknown]
